FAERS Safety Report 5265124-8 (Version None)
Quarter: 2007Q1

REPORT INFORMATION
  Report Type: 
  Country: None (occurrence: None)
  Receive Date: 20061121
  Receipt Date: 20061006
  Transmission Date: 20070707
  Serious: No
  Sender: FDA-Public Use
  Company Number: TPA2006A01751

PATIENT
  Age: 55 Year
  Sex: Female
  Weight: 52.6173 kg

DRUGS (3)
  1. ROZEREM [Suspect]
     Indication: INSOMNIA
     Dosage: 8 MG, HS, PER ORAL
     Route: 048
     Dates: start: 20061004
  2. ACTIVELLA [Concomitant]
  3. UNKNOWN TRANSDERMAL CREAM (ALL OTHER THERAPEUTIC PRODUCTS) (CREAM) [Concomitant]

REACTIONS (1)
  - MIDDLE INSOMNIA [None]
